FAERS Safety Report 14615514 (Version 3)
Quarter: 2021Q2

REPORT INFORMATION
  Report Type: Report from Study
  Country: DE (occurrence: DE)
  Receive Date: 20180308
  Receipt Date: 20210510
  Transmission Date: 20210716
  Serious: Yes (Hospitalization)
  Sender: FDA-Public Use
  Company Number: DE-TAKEDA-2018TUS005563

PATIENT
  Sex: Female

DRUGS (3)
  1. METAMIZOL                          /06276702/ [Suspect]
     Active Substance: METAMIZOLE
     Indication: PRODUCT USED FOR UNKNOWN INDICATION
     Dosage: UNK
     Route: 065
  2. USTEKINUMAB [Concomitant]
     Active Substance: USTEKINUMAB
     Dosage: UNK
     Dates: start: 20201211
  3. VEDOLIZUMAB [Suspect]
     Active Substance: VEDOLIZUMAB
     Indication: INFLAMMATORY BOWEL DISEASE
     Dosage: UNK
     Route: 042
     Dates: start: 20170113, end: 20181122

REACTIONS (2)
  - Pseudarthrosis [Recovered/Resolved]
  - Stress fracture [Recovered/Resolved]

NARRATIVE: CASE EVENT DATE: 20170914
